FAERS Safety Report 6615431-9 (Version None)
Quarter: 2010Q1

REPORT INFORMATION
  Report Type: 
  Country: None (occurrence: None)
  Receive Date: 20100305
  Receipt Date: 20091214
  Transmission Date: 20100710
  Serious: Yes (Other)
  Sender: FDA-Public Use
  Company Number: A0835528A

PATIENT
  Age: 85 Year
  Sex: Female

DRUGS (4)
  1. REQUIP [Suspect]
     Indication: RESTLESS LEGS SYNDROME
     Route: 048
     Dates: start: 20080101
  2. WARFARIN SODIUM [Concomitant]
  3. DIGOXIN [Concomitant]
  4. LOVASTATIN [Concomitant]

REACTIONS (5)
  - ERYTHEMA [None]
  - PAIN [None]
  - PRURITUS [None]
  - PSORIASIS [None]
  - RASH [None]
